FAERS Safety Report 5673998-1 (Version None)
Quarter: 2008Q1

REPORT INFORMATION
  Report Type: 
  Country: None (occurrence: None)
  Receive Date: 20080320
  Receipt Date: 20080307
  Transmission Date: 20080703
  Serious: Yes (Hospitalization, Disabling, Other)
  Sender: FDA-Public Use
  Company Number: BE-BAYER-200813826GPV

PATIENT
  Age: 71 Year
  Sex: Male

DRUGS (1)
  1. BETASERON [Suspect]
     Indication: MULTIPLE SCLEROSIS
     Route: 058

REACTIONS (4)
  - AORTIC ANEURYSM [None]
  - ISCHAEMIA [None]
  - MONOPLEGIA [None]
  - POST PROCEDURAL HAEMORRHAGE [None]
